FAERS Safety Report 6931574-4 (Version None)
Quarter: 2010Q3

REPORT INFORMATION
  Report Type: 
  Country: None (occurrence: None)
  Receive Date: 20100819
  Receipt Date: 20100805
  Transmission Date: 20110219
  Serious: Yes (Hospitalization, Other)
  Sender: FDA-Public Use
  Company Number: US-ELI_LILLY_AND_COMPANY-US201007002722

PATIENT
  Age: 87 Year
  Sex: Male
  Weight: 71.202 kg

DRUGS (11)
  1. FORTEO [Suspect]
     Indication: OSTEOPOROSIS
     Dosage: 20 UG, DAILY (1/D)
     Route: 065
     Dates: end: 20100629
  2. SYNTHROID [Concomitant]
  3. ASPIRIN [Concomitant]
  4. COUMADIN [Concomitant]
  5. OMEPRAZOLE [Concomitant]
  6. CARBAMAZEPINE [Concomitant]
  7. COLAZAL [Concomitant]
  8. CELEBREX [Concomitant]
  9. LYRICA [Concomitant]
  10. ZOCOR [Concomitant]
  11. OXYBUTYNIN [Concomitant]

REACTIONS (6)
  - ANAEMIA [None]
  - GOUT [None]
  - HYPERTENSION [None]
  - INAPPROPRIATE ANTIDIURETIC HORMONE SECRETION [None]
  - MALAISE [None]
  - NAUSEA [None]
